FAERS Safety Report 15701355 (Version 1)
Quarter: 2018Q4

REPORT INFORMATION
  Report Type: Spontaneous
  Country: ES (occurrence: ES)
  Receive Date: 20181207
  Receipt Date: 20181207
  Transmission Date: 20190205
  Serious: Yes (Other)
  Sender: FDA-Public Use
  Company Number: ES-TEVA-2018-ES-982994

PATIENT
  Age: 78 Year
  Sex: Female
  Weight: 75 kg

DRUGS (1)
  1. QUETIAPINA (1136A) [Suspect]
     Active Substance: QUETIAPINE
     Indication: AGITATION
     Dosage: 25 MILLIGRAM DAILY;
     Route: 048
     Dates: start: 20181005, end: 20181005

REACTIONS (2)
  - Depressed level of consciousness [Recovered/Resolved]
  - Product administration error [Recovered/Resolved]

NARRATIVE: CASE EVENT DATE: 20181005
